FAERS Safety Report 21915024 (Version 1)
Quarter: 2023Q1

REPORT INFORMATION
  Report Type: Spontaneous
  Country: US (occurrence: US)
  Receive Date: 20230126
  Receipt Date: 20230126
  Transmission Date: 20230418
  Serious: No
  Sender: FDA-Public Use
  Company Number: US-CATALYST PHARMACEUTICALS, INC-2022CAT00701

PATIENT
  Sex: Female

DRUGS (1)
  1. FIRDAPSE [Suspect]
     Active Substance: AMIFAMPRIDINE PHOSPHATE
     Indication: Myasthenic syndrome
     Dosage: 10 MG, 4X/DAY
     Route: 048
     Dates: start: 201901

REACTIONS (6)
  - Energy increased [Unknown]
  - Product dose omission issue [Unknown]
  - Somnolence [Unknown]
  - Memory impairment [Unknown]
  - Sleep disorder [Unknown]
  - Intentional dose omission [Unknown]
